FAERS Safety Report 18149852 (Version 1)
Quarter: 2020Q3

REPORT INFORMATION
  Report Type: Spontaneous
  Country: US (occurrence: US)
  Receive Date: 20200813
  Receipt Date: 20200813
  Transmission Date: 20201103
  Serious: Yes (Hospitalization)
  Sender: FDA-Public Use
  Company Number: None

PATIENT
  Sex: Female

DRUGS (1)
  1. ANAGRELIDE HYDROCHLORIDE 0.5MG TORRENT PHARMACEUTICALS [Suspect]
     Active Substance: ANAGRELIDE HYDROCHLORIDE
     Indication: THROMBOCYTOSIS
     Route: 048
     Dates: start: 201511

REACTIONS (12)
  - Nausea [None]
  - Joint swelling [None]
  - Contusion [None]
  - Gait disturbance [None]
  - Flatulence [None]
  - Pain in extremity [None]
  - Syncope [None]
  - Fall [None]
  - Pruritus [None]
  - Amnesia [None]
  - Confusional state [None]
  - Dizziness [None]
